FAERS Safety Report 5054380-7 (Version None)
Quarter: 2006Q3

REPORT INFORMATION
  Report Type: 
  Country: None (occurrence: None)
  Receive Date: 20060713
  Receipt Date: 20060629
  Transmission Date: 20061208
  Serious: Yes (Hospitalization)
  Sender: FDA-Public Use
  Company Number: 225956

PATIENT
  Age: 67 Year
  Sex: Female
  Weight: 55.3 kg

DRUGS (5)
  1. AVASTIN [Suspect]
     Indication: COLORECTAL CANCER METASTATIC
     Dosage: 291 MG, Q2W, INTRAVENOUS
     Route: 042
     Dates: start: 20060512
  2. CAPECITABINE(CAPECITABINE) [Suspect]
     Indication: COLORECTAL CANCER METASTATIC
     Dosage: 2500 MG, BID, ORAL
     Route: 048
     Dates: start: 20060512
  3. OXALIPLATN(OXALIPLATIN) [Suspect]
     Indication: COLORECTAL CANCER METASTATIC
     Dosage: 135 MG, Q2W, INTRAVENOUS
     Route: 042
     Dates: start: 20060512
  4. OXALIPLATN(OXALIPLATIN) [Suspect]
  5. XALATAN [Concomitant]

REACTIONS (16)
  - ABDOMINAL PAIN [None]
  - BACTERIA URINE [None]
  - BLOOD POTASSIUM DECREASED [None]
  - BLOOD SODIUM DECREASED [None]
  - DIARRHOEA [None]
  - ENTERITIS [None]
  - ENTEROCOLITIS [None]
  - INFECTION [None]
  - INTESTINAL OBSTRUCTION [None]
  - NAUSEA [None]
  - NEUTROPHIL COUNT DECREASED [None]
  - RED BLOOD CELLS URINE POSITIVE [None]
  - URINE ANALYSIS ABNORMAL [None]
  - VOMITING [None]
  - WHITE BLOOD CELL COUNT DECREASED [None]
  - WHITE BLOOD CELLS URINE POSITIVE [None]
